FAERS Safety Report 11484263 (Version 1)
Quarter: 2015Q3

REPORT INFORMATION
  Report Type: Spontaneous
  Country: US (occurrence: US)
  Receive Date: 20150903
  Receipt Date: 20150903
  Transmission Date: 20151125
  Serious: No
  Sender: FDA-Public Use
  Company Number: US-ELI_LILLY_AND_COMPANY-US201206009198

PATIENT
  Age: 55 Year
  Sex: Male

DRUGS (1)
  1. CYMBALTA [Suspect]
     Active Substance: DULOXETINE HYDROCHLORIDE
     Indication: DEPRESSION
     Dosage: 30 MG, EACH MORNING

REACTIONS (7)
  - Fatigue [Unknown]
  - Disturbance in attention [Unknown]
  - Feeling abnormal [Unknown]
  - Depressed level of consciousness [Unknown]
  - Insomnia [Recovered/Resolved]
  - Somnolence [Unknown]
  - Confusional state [Unknown]
